FAERS Safety Report 14473731 (Version 6)
Quarter: 2018Q2

REPORT INFORMATION
  Report Type: Spontaneous
  Country: US (occurrence: US)
  Receive Date: 20180201
  Receipt Date: 20180625
  Transmission Date: 20180711
  Serious: No
  Sender: FDA-Public Use
  Company Number: US-PFIZER INC-2018039108

PATIENT
  Age: 69 Year
  Sex: Male
  Weight: 86 kg

DRUGS (3)
  1. SUTENT [Suspect]
     Active Substance: SUNITINIB MALATE
     Dosage: 50 MG, CYCLIC (D 1-14 Q 21 DAYS)
     Route: 048
     Dates: start: 201803, end: 2018
  2. SUTENT [Suspect]
     Active Substance: SUNITINIB MALATE
     Dosage: 50 MG, CYCLIC (D 1-28 Q 42 DAYS)
     Route: 048
     Dates: start: 20171230, end: 201803
  3. SUTENT [Suspect]
     Active Substance: SUNITINIB MALATE
     Indication: RENAL CANCER METASTATIC
     Dosage: 50 MG, CYCLIC (D 1-28 Q 42 DAYS)
     Route: 048
     Dates: start: 20171230

REACTIONS (10)
  - Neoplasm progression [Unknown]
  - Pain in extremity [Unknown]
  - Dysgeusia [Unknown]
  - Dyspepsia [Unknown]
  - Glossodynia [Unknown]
  - Hypotension [Unknown]
  - Fatigue [Unknown]
  - White blood cell count decreased [Unknown]
  - Drug dose omission [Unknown]
  - Gastrooesophageal reflux disease [Not Recovered/Not Resolved]
